FAERS Safety Report 6845046-9 (Version None)
Quarter: 2010Q3

REPORT INFORMATION
  Report Type: 
  Country: None (occurrence: None)
  Receive Date: 20100715
  Receipt Date: 20070811
  Transmission Date: 20110219
  Serious: No
  Sender: FDA-Public Use
  Company Number: US-PFIZER INC-2007068019

PATIENT
  Sex: Male
  Weight: 99.8 kg

DRUGS (6)
  1. CHANTIX [Suspect]
     Indication: SMOKING CESSATION THERAPY
     Dates: start: 20070808
  2. PLAVIX [Concomitant]
  3. DILANTIN [Concomitant]
  4. MORPHINE [Concomitant]
     Indication: PAIN
  5. NEXIUM [Concomitant]
  6. PAXIL [Concomitant]

REACTIONS (4)
  - ABDOMINAL DISTENSION [None]
  - BLOOD PRESSURE DECREASED [None]
  - OEDEMA PERIPHERAL [None]
  - SOMNOLENCE [None]
